FAERS Safety Report 6641005-X (Version None)
Quarter: 2010Q1

REPORT INFORMATION
  Report Type: 
  Country: None (occurrence: None)
  Receive Date: 20100318
  Receipt Date: 20100308
  Transmission Date: 20100710
  Serious: Yes (Hospitalization)
  Sender: FDA-Public Use
  Company Number: B0638152A

PATIENT
  Sex: Male

DRUGS (5)
  1. ZOPHREN [Suspect]
     Dosage: 8MG CYCLIC
     Route: 042
     Dates: start: 20100105, end: 20100125
  2. TAXOTERE [Suspect]
     Dosage: 140MG CYCLIC
     Route: 042
     Dates: start: 20100105, end: 20100125
  3. FLUORO-URACILE [Suspect]
     Dosage: 1.4G CYCLIC
     Route: 042
     Dates: start: 20100105, end: 20100125
  4. CISPLATIN [Suspect]
     Dosage: 140MG CYCLIC
     Route: 042
     Dates: start: 20100105, end: 20100125
  5. EMEND [Suspect]
     Route: 048
     Dates: start: 20100105, end: 20100125

REACTIONS (1)
  - HEPATITIS [None]
